FAERS Safety Report 5327990-7 (Version None)
Quarter: 2007Q2

REPORT INFORMATION
  Report Type: 
  Country: None (occurrence: None)
  Receive Date: 20070517
  Receipt Date: 20070507
  Transmission Date: 20071010
  Serious: Yes (Other)
  Sender: FDA-Public Use
  Company Number: US-PFIZER INC-2007038840

PATIENT
  Sex: Female
  Weight: 81.6 kg

DRUGS (11)
  1. LYRICA [Suspect]
     Indication: NEUROPATHY
  2. GLUCOPHAGE [Concomitant]
  3. LIPITOR [Concomitant]
  4. AVANDIA [Concomitant]
  5. DIABETA [Concomitant]
  6. ELAVIL [Concomitant]
  7. DIOVAN [Concomitant]
  8. VITAMIN CAP [Concomitant]
  9. FELDENE [Concomitant]
  10. DESYREL [Concomitant]
  11. CLARITIN [Concomitant]

REACTIONS (4)
  - DIZZINESS [None]
  - DRY MOUTH [None]
  - PHOBIA OF DRIVING [None]
  - SOMNOLENCE [None]
